FAERS Safety Report 8840971 (Version 1)
Quarter: 2012Q4

REPORT INFORMATION
  Report Type: 
  Country: PT (occurrence: PT)
  Receive Date: 20121015
  Receipt Date: 20121015
  Transmission Date: 20130627
  Serious: Yes (Death)
  Sender: FDA-Public Use
  Company Number: PT-AMGEN-PRTSP2012064844

PATIENT
  Age: 44 Year
  Sex: Female
  Weight: 69 kg

DRUGS (6)
  1. NPLATE [Suspect]
     Indication: IDIOPATHIC THROMBOCYTOPENIC PURPURA
     Dosage: 69 mcg in 0.138 ml per week
     Route: 058
     Dates: start: 20110601, end: 201201
  2. BISOPROLOL HEMIFUMARATE [Concomitant]
     Indication: AUTOIMMUNE THROMBOCYTOPENIA
     Route: 048
  3. PARACETAMOL [Concomitant]
     Indication: AUTOIMMUNE THROMBOCYTOPENIA
     Route: 048
  4. AMILORIDE HCL [Concomitant]
     Indication: AUTOIMMUNE THROMBOCYTOPENIA
     Route: 048
  5. VALSARTAN [Concomitant]
     Indication: AUTOIMMUNE THROMBOCYTOPENIA
     Route: 048
  6. HYDROCHLOORTHIAZIDE [Concomitant]
     Indication: AUTOIMMUNE THROMBOCYTOPENIA
     Route: 048

REACTIONS (7)
  - Blood lactate dehydrogenase increased [Fatal]
  - Leukocytosis [Fatal]
  - Anaemia [Fatal]
  - Platelet production decreased [Fatal]
  - Myelofibrosis [Fatal]
  - Drug ineffective [Fatal]
  - Haemorrhagic stroke [Fatal]
